FAERS Safety Report 9928388 (Version 1)
Quarter: 2014Q1

REPORT INFORMATION
  Report Type: Spontaneous
  Country: FR (occurrence: FR)
  Receive Date: 20140227
  Receipt Date: 20140227
  Transmission Date: 20141002
  Serious: Yes (Hospitalization, Other)
  Sender: FDA-Public Use
  Company Number: FR-UCBSA-113561

PATIENT
  Age: 92 Year
  Sex: Female

DRUGS (5)
  1. KEPPRA [Suspect]
     Indication: EPILEPSY
     Dosage: 500MG DAILY
     Route: 048
     Dates: start: 20131113
  2. DIGOXINE NATIVELLE [Suspect]
     Indication: ATRIAL FIBRILLATION
     Dosage: 0.75MG SINGLE INTAKE
     Route: 042
     Dates: start: 20131122, end: 20131122
  3. DIGOXINE NATIVELLE [Suspect]
     Indication: ARRHYTHMIA
     Dosage: 0.75MG SINGLE INTAKE
     Route: 042
     Dates: start: 20131122, end: 20131122
  4. CALCIPARINE [Suspect]
     Dosage: DAILY DOSE 40000UI (1.6ML)
     Route: 058
     Dates: start: 20131122
  5. TRIATEC [Suspect]
     Indication: HYPERTENSION
     Dosage: 2.5MG DAILY
     Route: 048
     Dates: start: 20131113

REACTIONS (6)
  - Alanine aminotransferase increased [Recovered/Resolved]
  - Aspartate aminotransferase increased [Recovered/Resolved]
  - Hepatocellular injury [Recovered/Resolved]
  - Hepatic failure [Recovered/Resolved]
  - Prothrombin level decreased [Unknown]
  - Hyperkalaemia [Unknown]
